FAERS Safety Report 4636471-5 (Version None)
Quarter: 2005Q2

REPORT INFORMATION
  Report Type: 
  Country: None (occurrence: None)
  Receive Date: 20050413
  Receipt Date: 20050413
  Transmission Date: 20051028
  Serious: Yes (Other)
  Sender: FDA-Public Use
  Company Number: None

PATIENT
  Age: 28 Year
  Sex: Male
  Weight: 77.1115 kg

DRUGS (1)
  1. DOUBLE TUSSIN DM DXMETH 30 MG GUAIF 200 MG ZLGE, INC [Suspect]
     Indication: ANTITUSSIVE THERAPY
     Dosage: 1 TEASPOONFUL ORALLY
     Route: 048
     Dates: start: 20051231

REACTIONS (5)
  - DIZZINESS [None]
  - FEELING ABNORMAL [None]
  - HYPOAESTHESIA [None]
  - MUSCLE SPASMS [None]
  - TREMOR [None]
